FAERS Safety Report 25173271 (Version 1)
Quarter: 2025Q2

REPORT INFORMATION
  Report Type: Spontaneous
  Country: US (occurrence: US)
  Receive Date: 20250408
  Receipt Date: 20250408
  Transmission Date: 20250716
  Serious: Yes (Death, Other)
  Sender: AMGEN
  Company Number: US-AMGEN-USASP2025064740

PATIENT
  Age: 85 Year
  Sex: Male

DRUGS (6)
  1. RITUXIMAB [Suspect]
     Active Substance: RITUXIMAB
     Indication: Product used for unknown indication
     Route: 065
  2. ETOPOSIDE [Concomitant]
     Active Substance: ETOPOSIDE
  3. VORICONAZOLE [Concomitant]
     Active Substance: VORICONAZOLE
     Route: 065
  4. AMPHOTERICIN B [Concomitant]
     Active Substance: AMPHOTERICIN B
  5. DEXAMETHASONE [Concomitant]
     Active Substance: DEXAMETHASONE
     Route: 065
  6. HUMAN IMMUNOGLOBULIN G [Concomitant]
     Active Substance: HUMAN IMMUNOGLOBULIN G
     Route: 040

REACTIONS (6)
  - Death [Fatal]
  - Enterococcal bacteraemia [Unknown]
  - Haemophagocytic lymphohistiocytosis [Unknown]
  - General physical health deterioration [Unknown]
  - Sarcoidosis [Unknown]
  - Fungal infection [Unknown]
